FAERS Safety Report 17262675 (Version 1)
Quarter: 2019Q4

REPORT INFORMATION
  Report Type: Spontaneous
  Country: US (occurrence: US)
  Receive Date: 20191218
  Receipt Date: 20191218
  Transmission Date: 20200122
  Serious: No
  Sender: FDA-Public Use
  Company Number: None

PATIENT
  Age: 44 Year
  Sex: Female

DRUGS (10)
  1. COSENTYX [Suspect]
     Active Substance: SECUKINUMAB
     Indication: PSORIATIC ARTHROPATHY
     Dosage: 2 SYRINGES (300MG) Q4W SUBCUTANEOUS
     Route: 058
     Dates: start: 20180508
  2. NAPROXEN. [Concomitant]
     Active Substance: NAPROXEN
  3. AMBIEN [Concomitant]
     Active Substance: ZOLPIDEM TARTRATE
  4. PROZAC [Concomitant]
     Active Substance: FLUOXETINE HYDROCHLORIDE
  5. VITAMIN C [Concomitant]
     Active Substance: ASCORBIC ACID
  6. COSENTYX [Suspect]
     Active Substance: SECUKINUMAB
     Indication: SPONDYLITIS
     Dosage: 2 SYRINGES (300MG) Q4W SUBCUTANEOUS
     Route: 058
     Dates: start: 20180508
  7. ZYRTEC [Concomitant]
     Active Substance: CETIRIZINE HYDROCHLORIDE
  8. CALCIUM+D [Concomitant]
     Active Substance: CALCIUM\VITAMIN D
  9. METOPROLOL TAR [Concomitant]
     Active Substance: METOPROLOL TARTRATE
  10. NORCO [Concomitant]
     Active Substance: ACETAMINOPHEN\HYDROCODONE BITARTRATE

REACTIONS (1)
  - Arthritis [None]

NARRATIVE: CASE EVENT DATE: 20191201
